FAERS Safety Report 17802620 (Version 1)
Quarter: 2020Q2

REPORT INFORMATION
  Report Type: Spontaneous
  Country: US (occurrence: US)
  Receive Date: 20200518
  Receipt Date: 20200518
  Transmission Date: 20200714
  Serious: Yes (Hospitalization)
  Sender: FDA-Public Use
  Company Number: None

PATIENT
  Age: 62 Year
  Sex: Male

DRUGS (30)
  1. MICARDIS [Concomitant]
     Active Substance: TELMISARTAN
  2. NAC [ACETYLCYSTEINE] [Concomitant]
     Active Substance: ACETYLCYSTEINE
  3. TRAMADOL HCL [Concomitant]
     Active Substance: TRAMADOL HYDROCHLORIDE
  4. VITAMIN D3 [Concomitant]
     Active Substance: CHOLECALCIFEROL
  5. SYNTHROID [Concomitant]
     Active Substance: LEVOTHYROXINE SODIUM
  6. MYCOPHENOLATE 500MG TAB [Suspect]
     Active Substance: MYCOPHENOLIC ACID
     Indication: RENAL TRANSPLANT
     Dosage: ?          OTHER FREQUENCY:QAM - QPM ;?
     Route: 048
     Dates: start: 20190119
  7. PREDNISONSE [Concomitant]
  8. TELMISARTAN. [Concomitant]
     Active Substance: TELMISARTAN
  9. VIRTUSSIN AC [Concomitant]
     Active Substance: CODEINE PHOSPHATE\GUAIFENESIN
  10. ESCITALOPRAM [Concomitant]
     Active Substance: ESCITALOPRAM OXALATE
  11. FLUCONAZOLE. [Concomitant]
     Active Substance: FLUCONAZOLE
  12. MYCOPHENOLAT [Concomitant]
     Active Substance: MYCOPHENOLATE MOFETIL
  13. PRAVASTATIN. [Concomitant]
     Active Substance: PRAVASTATIN
  14. VITAMIN B12 [Concomitant]
     Active Substance: CYANOCOBALAMIN
  15. ENVARSUS XR [Suspect]
     Active Substance: TACROLIMUS
     Indication: RENAL TRANSPLANT
     Route: 048
     Dates: start: 20191115
  16. FOLIC ACID. [Concomitant]
     Active Substance: FOLIC ACID
  17. ZOLPIDEM [Concomitant]
     Active Substance: ZOLPIDEM TARTRATE
  18. NOVOLOG [Concomitant]
     Active Substance: INSULIN ASPART
  19. ULCORIC [Concomitant]
  20. NIFEDIPINE. [Concomitant]
     Active Substance: NIFEDIPINE
  21. AMOX/KCLAV [Concomitant]
  22. MINOCYCLINE [Concomitant]
     Active Substance: MINOCYCLINE HYDROCHLORIDE
  23. TRIAMCINOLON CRE [Concomitant]
  24. ALLOPURINOL. [Concomitant]
     Active Substance: ALLOPURINOL
  25. CLONIDINE. [Concomitant]
     Active Substance: CLONIDINE
  26. LABETALOL [Concomitant]
     Active Substance: LABETALOL\LABETALOL HYDROCHLORIDE
  27. LANTOS SOLOS [Concomitant]
  28. NEORAL [Concomitant]
     Active Substance: CYCLOSPORINE
  29. APAP/CODIENE [Concomitant]
  30. CARVEDILOL. [Concomitant]
     Active Substance: CARVEDILOL

REACTIONS (1)
  - Infection [None]

NARRATIVE: CASE EVENT DATE: 20200515
